FAERS Safety Report 18288984 (Version 1)
Quarter: 2020Q3

REPORT INFORMATION
  Report Type: Spontaneous
  Country: US (occurrence: US)
  Receive Date: 20200921
  Receipt Date: 20200921
  Transmission Date: 20201103
  Serious: No
  Sender: FDA-Public Use
  Company Number: US-PFIZER INC-2020357646

PATIENT
  Age: 74 Year
  Sex: Female

DRUGS (2)
  1. VASELINE [PARAFFIN] [Suspect]
     Active Substance: PARAFFIN
     Dosage: UNK
  2. EUCRISA [Suspect]
     Active Substance: CRISABOROLE
     Indication: CONJUNCTIVITIS ALLERGIC
     Dosage: UNK, 2X/DAY
     Route: 061

REACTIONS (3)
  - Off label use [Unknown]
  - Product use in unapproved indication [Unknown]
  - Application site pruritus [Not Recovered/Not Resolved]
